FAERS Safety Report 11004105 (Version 1)
Quarter: 2015Q2

REPORT INFORMATION
  Report Type: Spontaneous
  Country: FR (occurrence: FR)
  Receive Date: 20150409
  Receipt Date: 20150409
  Transmission Date: 20150821
  Serious: Yes (Other)
  Sender: FDA-Public Use
  Company Number: FR-LEO PHARMA-233282

PATIENT
  Age: 56 Year
  Sex: Male
  Weight: 83 kg

DRUGS (1)
  1. PICATO [Suspect]
     Active Substance: INGENOL MEBUTATE
     Indication: ACTINIC KERATOSIS
     Dosage: 1 TUBE
     Route: 061
     Dates: start: 20141008, end: 20141010

REACTIONS (3)
  - Inappropriate schedule of drug administration [Unknown]
  - Bowen^s disease [Recovering/Resolving]
  - Application site irritation [Unknown]

NARRATIVE: CASE EVENT DATE: 20141229
